FAERS Safety Report 22089374 (Version 1)
Quarter: 2023Q1

REPORT INFORMATION
  Report Type: Spontaneous
  Country: US (occurrence: None)
  Receive Date: 20230311
  Receipt Date: 20230311
  Transmission Date: 20230418
  Serious: Yes (Other)
  Sender: FDA-Public Use
  Company Number: None

PATIENT
  Age: 28 Year
  Sex: Female
  Weight: 72 kg

DRUGS (6)
  1. GUANFACINE EXTENDED-RELEASE [Suspect]
     Active Substance: GUANFACINE
     Indication: Attention deficit hyperactivity disorder
     Dosage: OTHER QUANTITY : 120 TABLET(S);?FREQUENCY : DAILY;?
     Route: 048
     Dates: start: 20230305, end: 20230309
  2. CURCUMIN [Concomitant]
     Active Substance: CURCUMIN
  3. DIETARY SUPPLEMENT [Concomitant]
     Active Substance: DIETARY SUPPLEMENT
  4. SUBFLOWER LECCITHIN [Concomitant]
  5. CALCIUM, MAGNESIUM AND ZINC [Concomitant]
  6. WOMEN^S MULTIVITAMIN [Concomitant]

REACTIONS (13)
  - Dizziness [None]
  - Tension headache [None]
  - Presyncope [None]
  - Insomnia [None]
  - Decreased appetite [None]
  - Heart rate decreased [None]
  - Feeling cold [None]
  - Peripheral vascular disorder [None]
  - Nausea [None]
  - Dysphagia [None]
  - Mood altered [None]
  - Therapy cessation [None]
  - Tremor [None]

NARRATIVE: CASE EVENT DATE: 20230309
